FAERS Safety Report 4920093-2 (Version None)
Quarter: 2006Q1

REPORT INFORMATION
  Report Type: 
  Country: None (occurrence: None)
  Receive Date: 20060216
  Receipt Date: 20050421
  Transmission Date: 20060701
  Serious: Yes (Hospitalization)
  Sender: FDA-Public Use
  Company Number: DSA_26333_2005

PATIENT
  Sex: Male
  Weight: 83 kg

DRUGS (5)
  1. CARDIZEM [Suspect]
     Indication: ESSENTIAL HYPERTENSION
     Dosage: 180 MG Q DAY PO
     Route: 048
     Dates: start: 19960101
  2. COVERSYL [Suspect]
     Indication: ESSENTIAL HYPERTENSION
     Dosage: 4 MG Q DAY PO
     Route: 048
     Dates: start: 19970101
  3. PLAVIX [Suspect]
     Dosage: 75 MG Q DAY PO
     Route: 048
     Dates: start: 19991201, end: 20000329
  4. LIPITOR [Suspect]
     Indication: METABOLIC DISORDER
     Dosage: 40 MG Q DAY PO
     Route: 048
     Dates: start: 19990701
  5. BETALOC [Suspect]
     Indication: ESSENTIAL HYPERTENSION
     Dosage: 50 MG Q DAY PO
     Route: 048
     Dates: start: 19950101

REACTIONS (3)
  - APLASTIC ANAEMIA [None]
  - PARAESTHESIA [None]
  - RASH PUSTULAR [None]
